FAERS Safety Report 6865218-7 (Version None)
Quarter: 2010Q3

REPORT INFORMATION
  Report Type: 
  Country: None (occurrence: None)
  Receive Date: 20100721
  Receipt Date: 20100707
  Transmission Date: 20110219
  Serious: Yes (Hospitalization)
  Sender: FDA-Public Use
  Company Number: GB-MYLANLABS-2010S1011622

PATIENT
  Age: 55 Year
  Sex: Female
  Weight: 66.4 kg

DRUGS (5)
  1. VENLAFAXINE [Suspect]
     Indication: DEPRESSION
     Route: 048
     Dates: start: 20100421
  2. ANTIHYPERTENSIVES [Concomitant]
     Indication: HYPERTENSION
  3. FLUOXETINE [Concomitant]
     Indication: DEPRESSION
     Dates: end: 20100428
  4. RISPERDAL [Concomitant]
     Indication: PARANOIA
     Dates: start: 20090101
  5. STELAZINE [Concomitant]
     Indication: PARANOIA
     Dates: start: 20090101

REACTIONS (2)
  - MUSCULOSKELETAL PAIN [None]
  - PAIN IN EXTREMITY [None]
